FAERS Safety Report 8710596 (Version 2)
Quarter: 2012Q4

REPORT INFORMATION
  Report Type: 
  Country: US (occurrence: US)
  Receive Date: 20120807
  Receipt Date: 20120914
  Transmission Date: 20130627
  Serious: No
  Sender: FDA-Public Use
  Company Number: US-ELI_LILLY_AND_COMPANY-US201207008350

PATIENT
  Age: 33 Year
  Sex: Female
  Weight: 72.11 kg

DRUGS (1)
  1. CYMBALTA [Suspect]
     Indication: ANXIETY
     Dosage: 30 mg, qd
     Route: 048
     Dates: start: 20120724, end: 20120725

REACTIONS (5)
  - Swollen tongue [Recovered/Resolved]
  - Lip swelling [Recovered/Resolved]
  - Mania [Recovered/Resolved]
  - Dysphagia [Recovered/Resolved]
  - Nausea [Recovered/Resolved]
